FAERS Safety Report 7109150-2 (Version None)
Quarter: 2010Q4

REPORT INFORMATION
  Report Type: 
  Country: None (occurrence: None)
  Receive Date: 20101117
  Receipt Date: 20101116
  Transmission Date: 20110411
  Serious: Yes (Death, Other)
  Sender: FDA-Public Use
  Company Number: DE-PFIZER INC-2010125158

PATIENT
  Age: 58 Year
  Sex: Female

DRUGS (5)
  1. LYRICA [Suspect]
     Indication: PAIN IN EXTREMITY
     Dosage: 300 MG, 2X/DAY
     Route: 048
     Dates: start: 20100701
  2. SEVREDOL [Concomitant]
     Indication: PAIN
     Dosage: 10 UNK, AS NEEDED
     Route: 048
     Dates: start: 20100701, end: 20101001
  3. FENTANYL [Concomitant]
     Indication: PAIN
     Dosage: 100 UG, EVERY 3 DAYS
     Route: 061
     Dates: start: 20100601, end: 20101001
  4. FENTANYL CITRATE [Concomitant]
     Dosage: 200 MG, AS NEEDED
     Route: 048
     Dates: start: 20100801, end: 20101001
  5. METAMIZOLE SODIUM [Concomitant]
     Route: 048

REACTIONS (5)
  - COORDINATION ABNORMAL [None]
  - DYSKINESIA [None]
  - MUSCULAR WEAKNESS [None]
  - TUMOUR PERFORATION [None]
  - WEIGHT BEARING DIFFICULTY [None]
